FAERS Safety Report 8843131 (Version 1)
Quarter: 2012Q4

REPORT INFORMATION
  Report Type: 
  Country: US (occurrence: US)
  Receive Date: 20121016
  Receipt Date: 20121016
  Transmission Date: 20130627
  Serious: No
  Sender: FDA-Public Use
  Company Number: US-VERTEX PHARMACEUTICAL INC.-2012-022303

PATIENT
  Age: 62 None
  Sex: Female
  Weight: 77 kg

DRUGS (4)
  1. INCIVEK [Suspect]
     Indication: HEPATITIS C
     Dosage: 3 DF, bid
     Route: 048
     Dates: start: 20120721
  2. RIBAVIRIN [Suspect]
     Indication: HEPATITIS C
     Dosage: 600mg AM/ 400mg PM
     Dates: start: 20120721
  3. RIBAVIRIN [Suspect]
     Dosage: 400 mg, bid
     Route: 048
     Dates: start: 2012
  4. PEGASYS [Suspect]
     Indication: HEPATITIS C
     Dosage: 180 ?g,WEEKLY
     Route: 058
     Dates: start: 20120720

REACTIONS (3)
  - Weight increased [Not Recovered/Not Resolved]
  - Feeling abnormal [Unknown]
  - Anaemia [Not Recovered/Not Resolved]
